FAERS Safety Report 20740512 (Version 1)
Quarter: 2022Q2

REPORT INFORMATION
  Report Type: Spontaneous
  Country: US (occurrence: None)
  Receive Date: 20220422
  Receipt Date: 20220422
  Transmission Date: 20220720
  Serious: Yes (Other)
  Sender: FDA-Public Use
  Company Number: None

PATIENT
  Age: 34 Year
  Sex: Female
  Weight: 93.15 kg

DRUGS (1)
  1. HAND SANITIZER OTC [Suspect]
     Active Substance: ALCOHOL
     Indication: Infection prophylaxis
     Dosage: FREQUENCY : AS NEEDED;?
     Route: 061

REACTIONS (3)
  - Pain in extremity [None]
  - Swelling [None]
  - Inflammation [None]

NARRATIVE: CASE EVENT DATE: 20200615
